FAERS Safety Report 11844974 (Version 10)
Quarter: 2016Q3

REPORT INFORMATION
  Report Type: Report from Study
  Country: DE (occurrence: DE)
  Receive Date: 20151217
  Receipt Date: 20160912
  Transmission Date: 20161109
  Serious: Yes (Hospitalization, Disabling, Other)
  Sender: FDA-Public Use
  Company Number: PHHY2015DE148817

PATIENT
  Age: 43 Year
  Sex: Female
  Weight: 49 kg

DRUGS (13)
  1. CITALOPRAM [Concomitant]
     Active Substance: CITALOPRAM HYDROBROMIDE
     Indication: PRODUCT USED FOR UNKNOWN INDICATION
     Dosage: 20 MG, UNK (1/2-0-0)
     Route: 065
  2. GILENYA [Suspect]
     Active Substance: FINGOLIMOD HYDROCHLORIDE
     Indication: RELAPSING-REMITTING MULTIPLE SCLEROSIS
     Dosage: 0.5 MG, QD
     Route: 048
     Dates: start: 20110413, end: 20151113
  3. ZOLPIDEM [Concomitant]
     Active Substance: ZOLPIDEM\ZOLPIDEM TARTRATE
     Indication: PRODUCT USED FOR UNKNOWN INDICATION
     Dosage: 10 MG, QHS AT 10 PM
     Route: 065
  4. ESOMEPRAZOLE [Concomitant]
     Active Substance: ESOMEPRAZOLE
     Indication: PRODUCT USED FOR UNKNOWN INDICATION
     Dosage: 20 MG, QD (0-0-1)
     Route: 065
  5. PLAVIX [Concomitant]
     Active Substance: CLOPIDOGREL BISULFATE
     Indication: PROPHYLAXIS
     Dosage: UNK
     Route: 065
  6. SMOFKABIVEN [Concomitant]
     Active Substance: UNSPECIFIED INGREDIENT
     Indication: PRODUCT USED FOR UNKNOWN INDICATION
     Dosage: UNK, BID
     Route: 065
  7. METOPROLOL. [Concomitant]
     Active Substance: METOPROLOL
     Indication: PRODUCT USED FOR UNKNOWN INDICATION
     Dosage: 45 MG, QD (1-0-0)
     Route: 065
  8. VIGIL [Concomitant]
     Active Substance: MODAFINIL
     Indication: PRODUCT USED FOR UNKNOWN INDICATION
     Dosage: 100 MG, TID (2-1-0)
     Route: 065
  9. COTRIM [Concomitant]
     Active Substance: SULFAMETHOXAZOLE\TRIMETHOPRIM
     Indication: PROPHYLAXIS
     Dosage: 2400 MG OVER 90 MIN (7AM-3PM-11PM DAY 1)
     Route: 065
     Dates: start: 20151113
  10. OMEPRAZOLE. [Concomitant]
     Active Substance: OMEPRAZOLE
     Indication: PRODUCT USED FOR UNKNOWN INDICATION
     Dosage: 20 MG, QD
     Route: 065
  11. MOVICOL [Concomitant]
     Active Substance: POLYETHYLENE GLYCOL 3350\POTASSIUM CHLORIDE\SODIUM BICARBONATE\SODIUM CHLORIDE
     Indication: PRODUCT USED FOR UNKNOWN INDICATION
     Dosage: 1-0-1
     Route: 065
  12. ASPIRIN. [Concomitant]
     Active Substance: ASPIRIN
     Indication: PROPHYLAXIS
     Dosage: 100 MG, QD
     Route: 065
  13. GRANISETRON [Concomitant]
     Active Substance: GRANISETRON
     Indication: NAUSEA
     Dosage: 1 MG/ML, PRN
     Route: 065

REACTIONS (42)
  - General physical health deterioration [Unknown]
  - Vomiting [Unknown]
  - Dysphagia [Unknown]
  - Panniculitis [Unknown]
  - Anal incontinence [Unknown]
  - Hemiparesis [Unknown]
  - Disturbance in attention [Unknown]
  - CSF cell count increased [Unknown]
  - Oral herpes [Unknown]
  - Diplopia [Recovered/Resolved]
  - Gait disturbance [Unknown]
  - Paresis [Unknown]
  - Hypoaesthesia [Unknown]
  - Cachexia [Unknown]
  - Lymphocyte count decreased [Unknown]
  - Cell-mediated immune deficiency [Unknown]
  - Cerebral haemorrhage [Recovered/Resolved with Sequelae]
  - Paraesthesia [Recovered/Resolved]
  - Hypokalaemia [Unknown]
  - Pyrexia [Unknown]
  - Memory impairment [Unknown]
  - Multiple sclerosis relapse [Unknown]
  - Aphasia [Unknown]
  - Psychomotor skills impaired [Unknown]
  - Cerebral ischaemia [Unknown]
  - Urinary incontinence [Unknown]
  - Road traffic accident [Unknown]
  - Optic neuropathy [Unknown]
  - CNS ventriculitis [Unknown]
  - Meningitis cryptococcal [Recovered/Resolved]
  - Basal ganglia haemorrhage [Unknown]
  - Epilepsy [Unknown]
  - Dyspepsia [Unknown]
  - Weight decreased [Unknown]
  - Device dislocation [Unknown]
  - Meningitis cryptococcal [Recovered/Resolved with Sequelae]
  - Ataxia [Unknown]
  - Staphylococcal infection [Recovered/Resolved]
  - Confusional state [Unknown]
  - Restlessness [Unknown]
  - Central nervous system lesion [Unknown]
  - Ophthalmoplegia [Unknown]

NARRATIVE: CASE EVENT DATE: 201509
